FAERS Safety Report 22386900 (Version 1)
Quarter: 2023Q2

REPORT INFORMATION
  Report Type: Spontaneous
  Country: US (occurrence: US)
  Receive Date: 20230531
  Receipt Date: 20230531
  Transmission Date: 20230722
  Serious: Yes (Hospitalization)
  Sender: FDA-Public Use
  Company Number: US-drreddys-SPO/USA/23/0165983

PATIENT
  Age: 6 Year
  Sex: Female

DRUGS (1)
  1. VIGABATRIN [Suspect]
     Active Substance: VIGABATRIN
     Indication: Focal dyscognitive seizures
     Dosage: 1 1/2 500 MG TABLETS 2 TIMES A DAY
     Route: 048

REACTIONS (1)
  - Hospitalisation [Unknown]
